FAERS Safety Report 10339812 (Version 1)
Quarter: 2014Q3

REPORT INFORMATION
  Report Type: Spontaneous
  Country: US (occurrence: None)
  Receive Date: 20140723
  Receipt Date: 20140723
  Transmission Date: 20150326
  Serious: Yes (Life-Threatening, Hospitalization, Disabling)
  Sender: FDA-Public Use
  Company Number: None

PATIENT
  Age: 49 Year
  Sex: Male
  Weight: 172 kg

DRUGS (1)
  1. RIVAROXABAN [Suspect]
     Active Substance: RIVAROXABAN
     Indication: ATRIAL FIBRILLATION
     Dosage: 1 TABLET QD ORAL
     Route: 048

REACTIONS (5)
  - Haemorrhage intracranial [None]
  - Quadriplegia [None]
  - Respiratory failure [None]
  - Hypertensive crisis [None]
  - Unresponsive to stimuli [None]

NARRATIVE: CASE EVENT DATE: 20140717
